FAERS Safety Report 8138615-X (Version None)
Quarter: 2012Q1

REPORT INFORMATION
  Report Type: 
  Country: None (occurrence: None)
  Receive Date: 20120215
  Receipt Date: 20120208
  Transmission Date: 20120608
  Serious: Yes (Hospitalization, Disabling)
  Sender: FDA-Public Use
  Company Number: US-BAYER-2011-063094

PATIENT
  Age: 30 Year
  Sex: Female
  Weight: 85.4 kg

DRUGS (13)
  1. YAZ [Suspect]
  2. PERCOCET [Concomitant]
     Dosage: UNK UNK, PRN
  3. NAPROXEN [Concomitant]
  4. PROZAC [Concomitant]
     Dosage: 20 MG, QD
  5. DILAUDID [Concomitant]
     Indication: PAIN
     Dosage: UNK UNK, PRN
  6. MIRALAX [Concomitant]
     Dosage: 17 MG, BID
  7. VICODIN [Concomitant]
     Dosage: UNK UNK, PRN
  8. AMBIEN [Concomitant]
     Indication: INSOMNIA
     Dosage: UNK UNK, PRN
  9. BENADRYL [Concomitant]
     Indication: INSOMNIA
     Dosage: UNK UNK, PRN
  10. PHENERGAN [Concomitant]
     Dosage: 25 MG, UNK
  11. ZOFRAN [Concomitant]
  12. FAMOTIDINE [Concomitant]
  13. MORPHINE [Concomitant]
     Indication: PAIN
     Dosage: UNK UNK, PRN

REACTIONS (4)
  - THROMBOPHLEBITIS SUPERFICIAL [None]
  - INJURY [None]
  - PAIN [None]
  - PULMONARY EMBOLISM [None]
